FAERS Safety Report 4761318-6 (Version None)
Quarter: 2005Q3

REPORT INFORMATION
  Report Type: 
  Country: None (occurrence: None)
  Receive Date: 20050901
  Receipt Date: 20050429
  Transmission Date: 20060218
  Serious: Yes (Hospitalization)
  Sender: FDA-Public Use
  Company Number: 2005FR-00254

PATIENT
  Age: 86 Year
  Sex: Female

DRUGS (7)
  1. ASPIRIN [Suspect]
     Dosage: 75 MG ORAL
     Route: 048
     Dates: start: 20000101, end: 20050411
  2. ARCOXIA [Suspect]
     Dosage: 60 MG ORAL
     Route: 048
     Dates: start: 20041101, end: 20050411
  3. CARBAMAZEPINE [Concomitant]
  4. DIAZEPAM [Concomitant]
  5. TRAZODONE HCL [Concomitant]
  6. ZOPICLONE [Concomitant]
  7. LANSOPRAZOLE [Concomitant]

REACTIONS (1)
  - GASTROINTESTINAL HAEMORRHAGE [None]
